FAERS Safety Report 7499136-0 (Version None)
Quarter: 2011Q2

REPORT INFORMATION
  Report Type: 
  Country: None (occurrence: None)
  Receive Date: 20110524
  Receipt Date: 20110214
  Transmission Date: 20111010
  Serious: No
  Sender: FDA-Public Use
  Company Number: US-NOVEN-11US001788

PATIENT
  Sex: Female
  Weight: 33.56 kg

DRUGS (5)
  1. SINGULAIR [Concomitant]
     Indication: ASTHMA
     Dosage: 5 MG, UNKNOWN
     Route: 048
     Dates: start: 20060101, end: 20110101
  2. COMBIVENT [Concomitant]
     Indication: ASTHMA
     Dosage: 2 UNK, UNK
     Route: 055
     Dates: start: 20060101, end: 20110101
  3. ZOLOFT [Concomitant]
     Indication: ANXIETY
     Dosage: 150 MG, UNKNOWN
     Route: 048
     Dates: start: 20060101, end: 20110101
  4. CLONIDINE [Concomitant]
     Indication: ANXIETY
     Dosage: .15 MG, QD
     Route: 048
     Dates: start: 20060101, end: 20110101
  5. DAYTRANA [Suspect]
     Indication: ATTENTION DEFICIT/HYPERACTIVITY DISORDER
     Dosage: 20 MG, UNKNOWN
     Route: 062
     Dates: start: 20110114

REACTIONS (3)
  - WRONG TECHNIQUE IN DRUG USAGE PROCESS [None]
  - INCORRECT DRUG ADMINISTRATION DURATION [None]
  - DRUG INEFFECTIVE [None]
